FAERS Safety Report 7878775-9 (Version None)
Quarter: 2011Q4

REPORT INFORMATION
  Report Type: 
  Country: None (occurrence: None)
  Receive Date: 20111021
  Receipt Date: 20110715
  Transmission Date: 20120403
  Serious: No
  Sender: FDA-Public Use
  Company Number: US-005860

PATIENT
  Age: 85 Year
  Sex: Male
  Weight: 68.4932 kg

DRUGS (7)
  1. DIOVAN [Concomitant]
  2. DEGARELIX (240 MG, 80 MG) [Suspect]
     Indication: PROSTATE CANCER
     Dosage: (240 MG 1X) ; (80 MG 1X/MONTH)
     Dates: start: 20110617
  3. DEGARELIX (240 MG, 80 MG) [Suspect]
     Indication: PROSTATE CANCER
     Dosage: (240 MG 1X) ; (80 MG 1X/MONTH)
     Dates: start: 20110715
  4. VYTORIN [Concomitant]
  5. GLIPIZIDE [Concomitant]
  6. CIMETIDINE [Concomitant]
  7. ASPIRIN [Concomitant]

REACTIONS (6)
  - TESTICULAR SWELLING [None]
  - SCROTAL SWELLING [None]
  - DYSURIA [None]
  - DRUG ADMINISTERED AT INAPPROPRIATE SITE [None]
  - HAEMORRHAGE URINARY TRACT [None]
  - FOOD INTERACTION [None]
